FAERS Safety Report 6609748-1 (Version None)
Quarter: 2010Q1

REPORT INFORMATION
  Report Type: 
  Country: None (occurrence: None)
  Receive Date: 20100302
  Receipt Date: 20100214
  Transmission Date: 20100710
  Serious: Yes (Other)
  Sender: FDA-Public Use
  Company Number: US-SANOFI-AVENTIS-2010SA011236

PATIENT
  Sex: Male

DRUGS (3)
  1. LANTUS [Suspect]
     Dosage: DOSE:38 UNIT(S)
     Route: 058
     Dates: start: 20050101
  2. LANTUS [Suspect]
     Dosage: DOSE:38 UNIT(S)
     Route: 058
     Dates: start: 20100101
  3. SOLOSTAR [Suspect]

REACTIONS (3)
  - BLOOD GLUCOSE INCREASED [None]
  - CEREBROVASCULAR ACCIDENT [None]
  - VISION BLURRED [None]
